FAERS Safety Report 18181945 (Version 1)
Quarter: 2020Q3

REPORT INFORMATION
  Report Type: Spontaneous
  Country: BE (occurrence: BE)
  Receive Date: 20200821
  Receipt Date: 20200821
  Transmission Date: 20201103
  Serious: Yes (Other)
  Sender: FDA-Public Use
  Company Number: BE-JNJFOC-20190609210

PATIENT
  Sex: Female
  Weight: 64 kg

DRUGS (2)
  1. STELARA [Suspect]
     Active Substance: USTEKINUMAB
  2. STELARA [Suspect]
     Active Substance: USTEKINUMAB
     Indication: CROHN^S DISEASE
     Route: 058

REACTIONS (5)
  - Product use issue [Unknown]
  - Drug ineffective [Unknown]
  - Small intestinal obstruction [Recovered/Resolved]
  - Crohn^s disease [Recovering/Resolving]
  - Off label use [Unknown]
